FAERS Safety Report 14563482 (Version 1)
Quarter: 2018Q1

REPORT INFORMATION
  Report Type: Spontaneous
  Country: US (occurrence: US)
  Receive Date: 20180222
  Receipt Date: 20180222
  Transmission Date: 20180509
  Serious: No
  Sender: FDA-Public Use
  Company Number: US-ASTRAZENECA-2018SE12387

PATIENT
  Sex: Male

DRUGS (1)
  1. PULMICORT FLEXHALER [Suspect]
     Active Substance: BUDESONIDE
     Dosage: 180 UG, TWO INHALATIONS DAILY
     Route: 055

REACTIONS (3)
  - Device malfunction [Unknown]
  - Intentional device misuse [Unknown]
  - Bronchitis [Unknown]
